FAERS Safety Report 4430872-6 (Version None)
Quarter: 2004Q3

REPORT INFORMATION
  Report Type: 
  Country: None (occurrence: None)
  Receive Date: 20040823
  Receipt Date: 20040810
  Transmission Date: 20050211
  Serious: Yes (Life-Threatening, Hospitalization)
  Sender: FDA-Public Use
  Company Number: FR-GLAXOSMITHKLINE-B0342160A

PATIENT
  Sex: Female
  Weight: 2.7 kg

DRUGS (7)
  1. RETROVIR [Suspect]
     Indication: ANTIVIRAL PROPHYLAXIS
     Dosage: 2MGK FOUR TIMES PER DAY
     Route: 048
     Dates: start: 20040511, end: 20040608
  2. COMBIVIR [Suspect]
     Indication: HIV INFECTION
     Dates: start: 20040215, end: 20040511
  3. RETROVIR [Suspect]
     Dates: start: 20040511, end: 20040511
  4. RITONAVIR [Suspect]
     Indication: HIV INFECTION
     Dates: start: 20040215, end: 20040511
  5. SAQUINAVIR [Suspect]
     Indication: HIV INFECTION
     Dates: start: 20040215, end: 20040511
  6. OMEPRAZOLE [Concomitant]
     Dates: start: 20040501
  7. DOMPERIDONE [Concomitant]
     Dates: start: 20040501

REACTIONS (7)
  - ANAEMIA [None]
  - DEHYDRATION [None]
  - DRUG EXPOSURE DURING PREGNANCY [None]
  - HYPOTONIA [None]
  - PALLOR [None]
  - PATENT DUCTUS ARTERIOSUS [None]
  - WEIGHT DECREASED [None]
